FAERS Safety Report 7602706-X (Version None)
Quarter: 2011Q3

REPORT INFORMATION
  Report Type: 
  Country: None (occurrence: None)
  Receive Date: 20110712
  Receipt Date: 20110705
  Transmission Date: 20111222
  Serious: Yes (Life-Threatening, Other)
  Sender: FDA-Public Use
  Company Number: CY-CELGENEUS-041-21880-11063610

PATIENT
  Sex: Female

DRUGS (16)
  1. DEXAMETHASONE [Concomitant]
     Indication: MULTIPLE MYELOMA
     Route: 065
     Dates: start: 20100501, end: 20110501
  2. RED BLOOD CELLS [Concomitant]
     Route: 065
  3. ALLOPURINOL [Concomitant]
     Route: 065
  4. METFORMIN HCL [Concomitant]
     Route: 065
  5. REVLIMID [Suspect]
     Dosage: 25 MILLIGRAM
     Route: 048
     Dates: start: 20100831
  6. REVLIMID [Suspect]
     Indication: MULTIPLE MYELOMA
     Dosage: 15 MILLIGRAM
     Route: 048
     Dates: start: 20100701
  7. AMLODIPINE [Concomitant]
     Route: 065
  8. ATENOLOL [Concomitant]
     Route: 065
  9. PLATELETS [Concomitant]
     Route: 065
  10. OMEPRAZOLE [Concomitant]
     Route: 065
  11. ASPIRIN [Concomitant]
     Route: 065
  12. ZOMETA [Concomitant]
     Route: 065
  13. EPOETIN ALFA [Concomitant]
     Route: 065
  14. REVLIMID [Suspect]
     Route: 048
     Dates: start: 20100501
  15. NEUPOGEN [Concomitant]
     Route: 065
  16. REVLIMID [Suspect]
     Dosage: 15 MILLIGRAM
     Route: 048
     Dates: start: 20110415, end: 20110501

REACTIONS (1)
  - ACUTE LYMPHOCYTIC LEUKAEMIA [None]
